FAERS Safety Report 19226299 (Version 1)
Quarter: 2021Q2

REPORT INFORMATION
  Report Type: Spontaneous
  Country: US (occurrence: US)
  Receive Date: 20210505
  Receipt Date: 20210505
  Transmission Date: 20210717
  Serious: No
  Sender: FDA-Public Use
  Company Number: US-ROCHE-2753791

PATIENT
  Sex: Female
  Weight: 77.18 kg

DRUGS (3)
  1. AVASTIN [Suspect]
     Active Substance: BEVACIZUMAB
     Indication: CHOLANGIOCARCINOMA
     Dosage: INFUSE 800 MG INTRAVENOUSLY
     Route: 042
     Dates: start: 20201022
  2. LANTUS SOLOSTAR [Concomitant]
     Active Substance: INSULIN GLARGINE
     Route: 058
     Dates: start: 20201019
  3. HUMALOG [Concomitant]
     Active Substance: INSULIN LISPRO
     Route: 058
     Dates: start: 20201019

REACTIONS (2)
  - Hypertension [Unknown]
  - Headache [Unknown]
